FAERS Safety Report 7867726-9 (Version None)
Quarter: 2011Q4

REPORT INFORMATION
  Report Type: 
  Country: None (occurrence: None)
  Receive Date: 20111028
  Receipt Date: 20111025
  Transmission Date: 20120403
  Serious: Yes (Hospitalization)
  Sender: FDA-Public Use
  Company Number: CHPA2011GB14909

PATIENT
  Age: 28 Month
  Sex: Male

DRUGS (1)
  1. EX-LAX 15MG CHOCOLATE PILLS [Suspect]
     Dosage: 18.75 MG, ONCE/SINGLE
     Route: 048

REACTIONS (4)
  - ACCIDENTAL DRUG INTAKE BY CHILD [None]
  - ACCIDENTAL OVERDOSE [None]
  - PAIN OF SKIN [None]
  - CHEMICAL INJURY [None]
